FAERS Safety Report 18236212 (Version 1)
Quarter: 2020Q3

REPORT INFORMATION
  Report Type: Other
  Country: IT (occurrence: IT)
  Receive Date: 20200906
  Receipt Date: 20200906
  Transmission Date: 20201103
  Serious: Yes (Other)
  Sender: FDA-Public Use
  Company Number: IT-ROCHE-2670474

PATIENT
  Age: 65 Year
  Sex: Female

DRUGS (2)
  1. HERCEPTIN [Suspect]
     Active Substance: TRASTUZUMAB
     Indication: HER2 POSITIVE BREAST CANCER
     Route: 065
  2. PERJETA [Suspect]
     Active Substance: PERTUZUMAB
     Indication: HER2 POSITIVE BREAST CANCER
     Route: 065

REACTIONS (8)
  - Fatigue [Unknown]
  - Subarachnoid haemorrhage [Unknown]
  - Poor venous access [Unknown]
  - Agitation [Unknown]
  - Mental disorder [Unknown]
  - Anxiety [Unknown]
  - Vein disorder [Unknown]
  - Infusion related reaction [Unknown]
